FAERS Safety Report 4320829-8 (Version None)
Quarter: 2004Q1

REPORT INFORMATION
  Report Type: 
  Country: None (occurrence: None)
  Receive Date: 20040315
  Receipt Date: 20030228
  Transmission Date: 20041129
  Serious: Yes (Other)
  Sender: FDA-Public Use
  Company Number: PHEH2003US01961

PATIENT
  Age: 30 Year
  Sex: Male

DRUGS (4)
  1. TRILEPTAL [Suspect]
     Dosage: 600 MG, BID
  2. ZOCOR [Concomitant]
  3. PREVACID [Concomitant]
  4. AVAPRO [Concomitant]

REACTIONS (2)
  - FALL [None]
  - PAIN [None]
